FAERS Safety Report 24788158 (Version 1)
Quarter: 2024Q4

REPORT INFORMATION
  Report Type: Spontaneous
  Country: SK (occurrence: SK)
  Receive Date: 20241230
  Receipt Date: 20241230
  Transmission Date: 20250114
  Serious: Yes (Hospitalization, Other)
  Sender: AUROBINDO
  Company Number: SK-TEVA-VS-3275033

PATIENT
  Age: 42 Year
  Sex: Female

DRUGS (3)
  1. OLANZAPINE [Suspect]
     Active Substance: OLANZAPINE
     Indication: Schizophrenia
     Dosage: 100 MILLIGRAM, EVERY 4 WEEK
     Route: 048
  2. FLUPENTIXOL [Suspect]
     Active Substance: FLUPENTIXOL
     Indication: Schizophrenia
     Dosage: UNK
     Route: 048
  3. ALPRAZOLAM [Suspect]
     Active Substance: ALPRAZOLAM
     Indication: Tension
     Dosage: UNK
     Route: 065

REACTIONS (4)
  - Delusional disorder, unspecified type [Recovering/Resolving]
  - Schizophrenia [Unknown]
  - Depression [Unknown]
  - Treatment noncompliance [Unknown]
